FAERS Safety Report 9857120 (Version 2)
Quarter: 2014Q1

REPORT INFORMATION
  Report Type: Spontaneous
  Country: FR (occurrence: FR)
  Receive Date: 20140130
  Receipt Date: 20140207
  Transmission Date: 20141002
  Serious: Yes (Other)
  Sender: FDA-Public Use
  Company Number: FR-GILEAD-2014-0093206

PATIENT
  Sex: Male

DRUGS (5)
  1. ATRIPLA [Suspect]
     Indication: HIV INFECTION
     Dosage: 1 DF, UNK
     Route: 048
     Dates: start: 20120217, end: 20130725
  2. BACTRIM [Concomitant]
     Indication: OPPORTUNISTIC INFECTION PROPHYLAXIS
     Dosage: UNK
     Route: 048
     Dates: start: 201202, end: 20130725
  3. RIFINAH [Concomitant]
     Indication: PULMONARY TUBERCULOSIS
     Dosage: 2 DF, UNK
     Route: 048
     Dates: start: 20120601, end: 20130128
  4. ETHAMBUTOL DIHYDROCHLORIDE [Concomitant]
     Indication: PULMONARY TUBERCULOSIS
     Dosage: UNK
     Route: 048
     Dates: start: 20120601, end: 20120601
  5. RIFATER [Concomitant]
     Indication: PULMONARY TUBERCULOSIS
     Dosage: UNK
     Route: 048
     Dates: start: 20120229, end: 20120601

REACTIONS (2)
  - Nightmare [Unknown]
  - Anxiety [Unknown]
